FAERS Safety Report 10238666 (Version 1)
Quarter: 2014Q2

REPORT INFORMATION
  Report Type: Spontaneous
  Country: US (occurrence: US)
  Receive Date: 20140616
  Receipt Date: 20140616
  Transmission Date: 20141212
  Serious: No
  Sender: FDA-Public Use
  Company Number: US-ENDO PHARMACEUTICALS INC.-OPCR20140097

PATIENT
  Sex: Male

DRUGS (2)
  1. OPANA ER 10MG [Suspect]
     Indication: PAIN
     Route: 048
     Dates: start: 201401, end: 201403
  2. OPANA ER 10MG [Suspect]
     Route: 048
     Dates: start: 201403

REACTIONS (1)
  - Drug ineffective [Unknown]
